FAERS Safety Report 9794715 (Version 3)
Quarter: 2014Q1

REPORT INFORMATION
  Report Type: Spontaneous
  Country: US (occurrence: US)
  Receive Date: 20140102
  Receipt Date: 20140214
  Transmission Date: 20141002
  Serious: Yes (Hospitalization, Other)
  Sender: FDA-Public Use
  Company Number: US-RB-061586-13

PATIENT
  Age: 67 Year
  Sex: Female

DRUGS (5)
  1. SUBOXONE FILM [Suspect]
     Indication: DRUG DEPENDENCE
     Dosage: SUBOXONE FILM; THE PATIENT WAS PRESCRIBED TO 16 MG DAILY BUT SOMETIMES TOOK 24 MG DAILY
     Route: 060
     Dates: start: 2011, end: 20131205
  2. SUBOXONE FILM [Suspect]
     Dosage: SUBOXONE FILM; THE PATIENT WAS PRESCRIBED TO 16 MG DAILY BUT SOMETIMES TOOK 24 MG DAILY
     Route: 060
     Dates: start: 2011, end: 20131205
  3. AMBIEN [Suspect]
     Indication: INSOMNIA
     Dosage: UNKNOWN DOSING DETAILS
     Route: 060
     Dates: start: 201312, end: 201312
  4. SAVELLA [Concomitant]
     Indication: FIBROMYALGIA
     Dosage: DOSING DETAILS UNKNOWN; TAKEN DAILY
     Route: 048
  5. SAVELLA [Concomitant]
     Indication: ANXIETY
     Dosage: DOSING DETAILS UNKNOWN; TAKEN DAILY
     Route: 048

REACTIONS (13)
  - Drug withdrawal syndrome [Recovered/Resolved]
  - Extra dose administered [Recovered/Resolved]
  - Hyperhidrosis [Recovered/Resolved]
  - Hypertension [Recovered/Resolved]
  - Insomnia [Recovered/Resolved]
  - Dyspnoea [Recovered/Resolved]
  - Asthenia [Recovered/Resolved]
  - Palpitations [Recovered/Resolved]
  - Gait disturbance [Recovered/Resolved]
  - Fatigue [Recovered/Resolved]
  - Anxiety [Recovered/Resolved]
  - Muscle twitching [Recovered/Resolved]
  - Hallucination [Recovered/Resolved]
